FAERS Safety Report 7663695-5 (Version None)
Quarter: 2011Q3

REPORT INFORMATION
  Report Type: 
  Country: None (occurrence: None)
  Receive Date: 20110805
  Receipt Date: 20100831
  Transmission Date: 20111222
  Serious: No
  Sender: FDA-Public Use
  Company Number: US-ABBOTT-10P-163-0668674-00

PATIENT
  Sex: Female
  Weight: 81.72 kg

DRUGS (3)
  1. NIASPAN [Suspect]
     Indication: APOLIPOPROTEIN
     Dates: start: 20100728
  2. NIASPAN [Suspect]
     Indication: APOLIPOPROTEIN
     Dates: start: 20100301, end: 20100728
  3. SIMVASTATIN [Concomitant]
     Indication: APOLIPOPROTEIN

REACTIONS (3)
  - CHILLS [None]
  - MYALGIA [None]
  - FLUSHING [None]
